FAERS Safety Report 10382027 (Version 1)
Quarter: 2014Q1

REPORT INFORMATION
  Report Type: Spontaneous
  Country: US (occurrence: None)
  Receive Date: 20140306
  Receipt Date: 20140306
  Transmission Date: 20141002
  Serious: Yes (Other)
  Sender: FDA-Public Use
  Company Number: 163-21880-13080581

PATIENT
  Age: 62 Year
  Sex: Female

DRUGS (9)
  1. REVLIMID [Suspect]
     Indication: DIFFUSE LARGE B-CELL LYMPHOMA
     Route: 048
     Dates: start: 201009, end: 2010
  2. REVLIMID [Suspect]
     Indication: CENTRAL NERVOUS SYSTEM LYMPHOMA
     Route: 048
     Dates: start: 201009, end: 2010
  3. METHOTREXATE [Suspect]
     Indication: DIFFUSE LARGE B-CELL LYMPHOMA
  4. DAPSONE [Concomitant]
  5. ACYCLOVIR (ACICLOVIR) [Concomitant]
  6. KEPPRA (LEVETIRACETAM) [Concomitant]
  7. LEXAPRO (ESCITALOPRAM OXALATE) [Concomitant]
  8. ESTRING (ESTRADIOL) [Concomitant]
  9. ADVAIR DISKUS [Concomitant]

REACTIONS (4)
  - Diffuse large B-cell lymphoma [None]
  - Disease progression [None]
  - Drug interaction [None]
  - Rash erythematous [None]
